FAERS Safety Report 4266121-1 (Version None)
Quarter: 2004Q1

REPORT INFORMATION
  Report Type: 
  Country: None (occurrence: None)
  Receive Date: 20040106
  Receipt Date: 20031112
  Transmission Date: 20041129
  Serious: Yes (Other)
  Sender: FDA-Public Use
  Company Number: GB-JNJFOC-20031102489

PATIENT
  Age: 19 Year
  Sex: Female

DRUGS (2)
  1. ORTHO EVRA [Suspect]
     Indication: CONTRACEPTION
     Dosage: 1 DOSE (S), 3 IN 4 WEEK, TRANSDERMAL
     Route: 062
     Dates: start: 20031014, end: 20031028
  2. FEXOFENADINE HCL [Concomitant]

REACTIONS (3)
  - BREAST PAIN [None]
  - PAIN IN EXTREMITY [None]
  - SYNCOPE [None]
